FAERS Safety Report 4356925-9 (Version None)
Quarter: 2004Q2

REPORT INFORMATION
  Report Type: 
  Country: None (occurrence: None)
  Receive Date: 20040507
  Receipt Date: 20040426
  Transmission Date: 20050107
  Serious: Yes (Other)
  Sender: FDA-Public Use
  Company Number: 205873

PATIENT
  Age: 65 Year
  Sex: Female

DRUGS (12)
  1. NUTROPIN AQ [Suspect]
     Indication: GROWTH HORMONE DEFICIENCY
     Dosage: 6.6 MG, QD
     Dates: start: 20030201, end: 20040323
  2. VOLTAREN [Concomitant]
  3. PAMELOR [Concomitant]
  4. VALTREX [Concomitant]
  5. LOVASTATIN [Concomitant]
  6. SYNTHROID [Concomitant]
  7. ULTRAM [Concomitant]
  8. PLAVIX [Concomitant]
  9. MONOPRIL [Concomitant]
  10. METROGEL [Concomitant]
  11. SLOW-MAG (MAGNESIUM CHLORIDE) [Concomitant]
  12. GLUCOPHAGE [Concomitant]

REACTIONS (1)
  - BREAST CANCER IN SITU [None]
